FAERS Safety Report 21474239 (Version 3)
Quarter: 2022Q4

REPORT INFORMATION
  Report Type: Report from Study
  Country: US (occurrence: US)
  Receive Date: 20221018
  Receipt Date: 20221125
  Transmission Date: 20230112
  Serious: No
  Sender: FDA-Public Use
  Company Number: US-ABBVIE-4139354

PATIENT
  Sex: Female

DRUGS (1)
  1. IMBRUVICA [Suspect]
     Active Substance: IBRUTINIB
     Indication: Chronic lymphocytic leukaemia
     Route: 048
     Dates: start: 202208

REACTIONS (11)
  - Haematocrit decreased [Unknown]
  - Haemoglobin decreased [Unknown]
  - Muscle spasms [Unknown]
  - Depression [Unknown]
  - Oedema peripheral [Unknown]
  - Muscular weakness [Unknown]
  - Arthralgia [Unknown]
  - Bone pain [Unknown]
  - Contusion [Unknown]
  - Lacrimation increased [Unknown]
  - Eye pruritus [Unknown]
